FAERS Safety Report 15929072 (Version 1)
Quarter: 2019Q1

REPORT INFORMATION
  Report Type: Spontaneous
  Country: IT (occurrence: IT)
  Receive Date: 20190206
  Receipt Date: 20190206
  Transmission Date: 20190417
  Serious: Yes (Death)
  Sender: FDA-Public Use
  Company Number: IT-MYLANLABS-2019M1010584

PATIENT
  Age: 24 Year
  Sex: Female

DRUGS (1)
  1. EPINEPHRINE. [Suspect]
     Active Substance: EPINEPHRINE
     Indication: ANAPHYLACTIC REACTION
     Dosage: MEDICAL PRODUCT NAME UNKNOWN
     Dates: start: 20180716, end: 20180716

REACTIONS (1)
  - Death [Fatal]

NARRATIVE: CASE EVENT DATE: 20180716
